FAERS Safety Report 18761278 (Version 1)
Quarter: 2021Q1

REPORT INFORMATION
  Report Type: Spontaneous
  Country: IN (occurrence: IN)
  Receive Date: 20210119
  Receipt Date: 20210119
  Transmission Date: 20210419
  Serious: Yes (Life-Threatening, Other)
  Sender: FDA-Public Use
  Company Number: IN-LUPIN LIMITED-2020-02938

PATIENT
  Age: 21 Year
  Sex: Female

DRUGS (1)
  1. DICLOFENAC [Suspect]
     Active Substance: DICLOFENAC
     Indication: POSTOPERATIVE ANALGESIA
     Dosage: UNK (75 MG IN 100 ML NS AS INFUSION)
     Route: 042

REACTIONS (2)
  - Anaphylactic reaction [Recovered/Resolved]
  - Exposure during pregnancy [Unknown]
